FAERS Safety Report 14221860 (Version 1)
Quarter: 2017Q4

REPORT INFORMATION
  Report Type: Report from Study
  Country: EC (occurrence: EC)
  Receive Date: 20171124
  Receipt Date: 20171124
  Transmission Date: 20180321
  Serious: Yes (Death)
  Sender: FDA-Public Use
  Company Number: EC-ROCHE-2024009

PATIENT
  Age: 58 Year
  Sex: Female

DRUGS (1)
  1. AVASTIN [Suspect]
     Active Substance: BEVACIZUMAB
     Indication: LUNG NEOPLASM MALIGNANT
     Dosage: SINGLE DOSE
     Route: 065
     Dates: start: 20171101

REACTIONS (2)
  - Cardio-respiratory arrest [Fatal]
  - Agitation [Unknown]

NARRATIVE: CASE EVENT DATE: 20171105
